FAERS Safety Report 8690919 (Version 2)
Quarter: 2013Q4

REPORT INFORMATION
  Report Type: Spontaneous
  Country: US (occurrence: US)
  Receive Date: 20120730
  Receipt Date: 20131101
  Transmission Date: 20140711
  Serious: No
  Sender: FDA-Public Use
  Company Number: US-009507513-1207USA007584

PATIENT
  Sex: Male

DRUGS (8)
  1. ISENTRESS [Suspect]
     Indication: HIV INFECTION
     Dosage: 400 MG, BID
     Route: 048
  2. ISENTRESS [Suspect]
     Dosage: UNK
  3. SAPHRIS [Suspect]
     Dosage: 10 MG, BID
  4. NEFAZODONE HYDROCHLORIDE [Suspect]
     Dosage: 300 MG, QD
  5. TRUVADA [Suspect]
     Dosage: 200-300 MG,QD
  6. MIRTAZAPINE [Suspect]
     Dosage: 15 MG, QD
  7. ALPRAZOLAM [Suspect]
     Dosage: 0.5 MG, PRN
  8. ZOLPIDEM TARTRATE [Suspect]
     Dosage: 10 MG, PRN

REACTIONS (1)
  - Mental disorder [Unknown]
